FAERS Safety Report 26074051 (Version 2)
Quarter: 2025Q4

REPORT INFORMATION
  Report Type: Spontaneous
  Country: IQ (occurrence: IQ)
  Receive Date: 20251121
  Receipt Date: 20251208
  Transmission Date: 20260118
  Serious: Yes (Life-Threatening, Other)
  Sender: NOVO NORDISK
  Company Number: IQ-NOVOPROD-1565005

PATIENT
  Age: 48 Year
  Sex: Male
  Weight: 98 kg

DRUGS (7)
  1. OZEMPIC [Suspect]
     Active Substance: SEMAGLUTIDE
     Indication: Chronic kidney disease
     Dosage: 0.25 MG FOR 6 WEEKS
  2. OZEMPIC [Suspect]
     Active Substance: SEMAGLUTIDE
     Dosage: 0.5 MG FOR 4 WEEKS
  3. OZEMPIC [Suspect]
     Active Substance: SEMAGLUTIDE
     Dosage: 1 MG
  4. DAPAGLIFLOZIN [Concomitant]
     Active Substance: DAPAGLIFLOZIN
     Indication: Product used for unknown indication
     Dosage: UNK
  5. KERENDIA [Concomitant]
     Active Substance: FINERENONE
     Indication: Product used for unknown indication
     Dosage: UNK
  6. ROSUVASTATIN [Concomitant]
     Active Substance: ROSUVASTATIN
     Indication: Product used for unknown indication
     Dosage: UNK
  7. IRBESARTAN [Concomitant]
     Active Substance: IRBESARTAN
     Indication: Product used for unknown indication
     Dosage: UNK

REACTIONS (9)
  - Diarrhoea [Unknown]
  - Nausea [Unknown]
  - Vomiting [Unknown]
  - Pyrexia [Unknown]
  - Malaise [Unknown]
  - Dehydration [Unknown]
  - Acute kidney injury [Recovered/Resolved]
  - Pancreatitis [Unknown]
  - Product use in unapproved indication [Unknown]
